FAERS Safety Report 7049403-X (Version None)
Quarter: 2010Q4

REPORT INFORMATION
  Report Type: 
  Country: None (occurrence: None)
  Receive Date: 20101018
  Receipt Date: 20101012
  Transmission Date: 20110411
  Serious: Yes (Other)
  Sender: FDA-Public Use
  Company Number: CA-ROCHE-733292

PATIENT
  Sex: Male

DRUGS (3)
  1. BEVACIZUMAB [Suspect]
     Indication: COLORECTAL CANCER
     Dosage: FORM: INFUSION
     Route: 042
     Dates: start: 20100729
  2. ASPIRIN [Concomitant]
  3. APO-ATENOL [Concomitant]
     Dosage: DRUG REPORTED: APO-ATENOLOL

REACTIONS (1)
  - JAUNDICE [None]
